FAERS Safety Report 5894815-0 (Version None)
Quarter: 2008Q3

REPORT INFORMATION
  Report Type: 
  Country: None (occurrence: None)
  Receive Date: 20080922
  Receipt Date: 20080910
  Transmission Date: 20090109
  Serious: Yes (Hospitalization)
  Sender: FDA-Public Use
  Company Number: 2008-183413-NL

PATIENT
  Age: 60 Year
  Sex: Female

DRUGS (3)
  1. MIRTAZAPINE [Suspect]
     Indication: DEPRESSION
     Dosage: 15 MG QD ORAL
     Route: 048
     Dates: start: 20080820, end: 20080829
  2. ATORVASTATIN [Concomitant]
  3. CONJUGATED ESTROGENS [Concomitant]

REACTIONS (2)
  - ATRIAL FLUTTER [None]
  - SUPRAVENTRICULAR TACHYCARDIA [None]
